FAERS Safety Report 8491247-6 (Version None)
Quarter: 2012Q3

REPORT INFORMATION
  Report Type: 
  Country: None (occurrence: None)
  Receive Date: 20120706
  Receipt Date: 20120629
  Transmission Date: 20120928
  Serious: Yes (Hospitalization)
  Sender: FDA-Public Use
  Company Number: PHEH2012US013018

PATIENT
  Sex: Male

DRUGS (1)
  1. GILENYA [Suspect]
     Dosage: 0.5 MG, DAILY
     Route: 048

REACTIONS (3)
  - CHEST PAIN [None]
  - DYSPNOEA [None]
  - MYOCARDIAL INFARCTION [None]
